FAERS Safety Report 9559231 (Version 3)
Quarter: 2013Q4

REPORT INFORMATION
  Report Type: Report from Study
  Country: US (occurrence: US)
  Receive Date: 20130927
  Receipt Date: 20131209
  Transmission Date: 20140711
  Serious: Yes (Death, Hospitalization, Other)
  Sender: FDA-Public Use
  Company Number: PHEH2013US020096

PATIENT
  Age: 89 Year
  Sex: Female

DRUGS (2)
  1. TOBI [Suspect]
     Indication: HEPATIC NECROSIS
     Dosage: 300 MG, BID
     Dates: start: 20130520
  2. PAMELOR [Suspect]
     Dosage: UNK

REACTIONS (8)
  - Death [Fatal]
  - Pneumonia [Unknown]
  - Pneumonia aspiration [Unknown]
  - Asthenia [Unknown]
  - Diet refusal [Unknown]
  - Bronchiectasis [Unknown]
  - Bacterial disease carrier [Unknown]
  - Adverse drug reaction [Unknown]
